FAERS Safety Report 5618396-1 (Version None)
Quarter: 2008Q1

REPORT INFORMATION
  Report Type: 
  Country: None (occurrence: None)
  Receive Date: 20080114
  Receipt Date: 20070406
  Transmission Date: 20080703
  Serious: Yes (Hospitalization)
  Sender: FDA-Public Use
  Company Number: A03200702545

PATIENT
  Age: 52 Year
  Sex: Female

DRUGS (5)
  1. PLAVIX [Suspect]
     Indication: CORONARY ANGIOPLASTY
     Dosage: 300 MG AS LOADING DOSE, FOLLOWED BY 75 MG/DAY - ORAL
     Route: 048
     Dates: start: 20070402
  2. PLAVIX [Suspect]
     Indication: STENT PLACEMENT
     Dosage: 300 MG AS LOADING DOSE, FOLLOWED BY 75 MG/DAY - ORAL
     Route: 048
     Dates: start: 20070402
  3. SIMVASTATIN [Concomitant]
  4. ACETYLSALICYLIC ACID SRT [Concomitant]
  5. ATENOLOL [Concomitant]

REACTIONS (3)
  - HEADACHE [None]
  - HYPOAESTHESIA [None]
  - PHOTOPHOBIA [None]
